FAERS Safety Report 4638840-6 (Version None)
Quarter: 2005Q2

REPORT INFORMATION
  Report Type: 
  Country: None (occurrence: None)
  Receive Date: 20050418
  Receipt Date: 20050418
  Transmission Date: 20051028
  Serious: No
  Sender: FDA-Public Use
  Company Number: None

PATIENT
  Sex: Female
  Weight: 56.6996 kg

DRUGS (3)
  1. IMITREX [Suspect]
     Indication: MIGRAINE
     Dosage: 50MG  PRN  ORAL
     Route: 048
     Dates: start: 20050316, end: 20050316
  2. ZANTAC [Concomitant]
  3. CALTRATE PLUS [Concomitant]

REACTIONS (8)
  - DISCOMFORT [None]
  - FEELING ABNORMAL [None]
  - FEELING HOT [None]
  - JOINT STIFFNESS [None]
  - MALAISE [None]
  - MUSCULOSKELETAL STIFFNESS [None]
  - PHOTOPHOBIA [None]
  - SENSATION OF HEAVINESS [None]
